FAERS Safety Report 8044618-6 (Version None)
Quarter: 2012Q1

REPORT INFORMATION
  Report Type: 
  Country: None (occurrence: None)
  Receive Date: 20120113
  Receipt Date: 20120111
  Transmission Date: 20120608
  Serious: Yes (Other)
  Sender: FDA-Public Use
  Company Number: US-JNJFOC-20120103833

PATIENT
  Sex: Female
  Weight: 76.2 kg

DRUGS (7)
  1. ELMIRON [Suspect]
     Indication: CYSTITIS INTERSTITIAL
     Route: 048
  2. VALIUM [Concomitant]
     Route: 048
     Dates: start: 20090101
  3. PROTONIX [Suspect]
     Indication: GASTRIC DISORDER
     Route: 065
     Dates: end: 20111223
  4. ATENOLOL [Concomitant]
     Indication: CARDIAC DISORDER
     Route: 048
  5. ELMIRON [Suspect]
     Route: 048
     Dates: start: 20110101, end: 20110101
  6. RISPERIDONE [Concomitant]
     Indication: ANXIETY
     Route: 048
     Dates: start: 20110101
  7. VALIUM [Concomitant]
     Indication: ANXIETY
     Route: 048
     Dates: start: 20090101

REACTIONS (4)
  - DYSGEUSIA [None]
  - TINNITUS [None]
  - INCORRECT DOSE ADMINISTERED [None]
  - DYSPHONIA [None]
